FAERS Safety Report 21214136 (Version 1)
Quarter: 2022Q3

REPORT INFORMATION
  Report Type: Report from Study
  Country: US (occurrence: US)
  Receive Date: 20220816
  Receipt Date: 20220816
  Transmission Date: 20221027
  Serious: Yes (Disabling, Other)
  Sender: FDA-Public Use
  Company Number: US-NOVOPROD-946667

PATIENT
  Age: 59 Year
  Sex: Male

DRUGS (1)
  1. NOVOLOG [Suspect]
     Active Substance: INSULIN ASPART
     Indication: Diabetes mellitus
     Dosage: UNK
     Route: 058
     Dates: start: 2011

REACTIONS (8)
  - Neuropathy peripheral [Unknown]
  - Atrioventricular block [Unknown]
  - Cataract [Unknown]
  - Eye degenerative disorder [Unknown]
  - Spinal column injury [Unknown]
  - Nerve compression [Unknown]
  - Foot amputation [Unknown]
  - Arthritis [Unknown]

NARRATIVE: CASE EVENT DATE: 20110101
